FAERS Safety Report 14578593 (Version 3)
Quarter: 2018Q1

REPORT INFORMATION
  Report Type: Report from Study
  Country: GB (occurrence: GB)
  Receive Date: 20180227
  Receipt Date: 20180315
  Transmission Date: 20180509
  Serious: Yes (Other)
  Sender: FDA-Public Use
  Company Number: GB-PFIZER INC-2018075849

PATIENT
  Sex: Male

DRUGS (1)
  1. LEVETIRACETAM. [Suspect]
     Active Substance: LEVETIRACETAM
     Dosage: UNK

REACTIONS (6)
  - Libido disorder [Unknown]
  - Abnormal dreams [Unknown]
  - Mood altered [Unknown]
  - Seizure [Recovered/Resolved]
  - Rib fracture [Unknown]
  - Upper limb fracture [Unknown]
